FAERS Safety Report 23733453 (Version 1)
Quarter: 2024Q2

REPORT INFORMATION
  Report Type: Spontaneous
  Country: PT (occurrence: PT)
  Receive Date: 20240411
  Receipt Date: 20240411
  Transmission Date: 20240716
  Serious: Yes (Life-Threatening)
  Sender: FDA-Public Use
  Company Number: None

PATIENT
  Age: 79 Year
  Sex: Male

DRUGS (2)
  1. CARBOPLATIN [Suspect]
     Active Substance: CARBOPLATIN
     Indication: Squamous cell carcinoma of lung
     Dosage: 497.77 MG?ROUTE OF ADMIN: INTRAVENOUS
     Dates: start: 20230822, end: 20230822
  2. Vinorelbine 30mg capsule OR [Vinorelbine] [Concomitant]
     Indication: Squamous cell carcinoma of lung
     Dosage: 58.25 MG/M2?CAPSULE SOFT?ORAL

REACTIONS (1)
  - Anaphylactic reaction [Recovered/Resolved]

NARRATIVE: CASE EVENT DATE: 20230822
